FAERS Safety Report 7795733-3 (Version None)
Quarter: 2011Q4

REPORT INFORMATION
  Report Type: 
  Country: None (occurrence: None)
  Receive Date: 20111004
  Receipt Date: 20110923
  Transmission Date: 20120403
  Serious: Yes (Disabling)
  Sender: FDA-Public Use
  Company Number: US-BAYER-2011-090819

PATIENT
  Sex: Female

DRUGS (3)
  1. YASMIN [Suspect]
     Dosage: UNK
     Dates: start: 20090101, end: 20101101
  2. DROSPIRENONE AND ETHINYL ESTRADIOL [Suspect]
     Dosage: UNK
     Dates: start: 20090101, end: 20101101
  3. YAZ [Suspect]
     Dosage: UNK
     Dates: start: 20090101, end: 20101101

REACTIONS (3)
  - THROMBOSIS [None]
  - INJURY [None]
  - PAIN [None]
